FAERS Safety Report 20545859 (Version 1)
Quarter: 2022Q1

REPORT INFORMATION
  Report Type: Spontaneous
  Country: US (occurrence: None)
  Receive Date: 20220302
  Receipt Date: 20220302
  Transmission Date: 20220423
  Serious: Yes (Hospitalization)
  Sender: FDA-Public Use
  Company Number: None

PATIENT
  Age: 4 Year
  Sex: Male
  Weight: 14.9 kg

DRUGS (14)
  1. REMDESIVIR [Suspect]
     Active Substance: REMDESIVIR
     Indication: COVID-19
     Dosage: OTHER FREQUENCY : ONCE/ LOADING DOSE;?
     Route: 042
  2. REMDESIVIR [Suspect]
     Active Substance: REMDESIVIR
     Indication: COVID-19
     Dosage: FREQUENCY : DAILY;?
     Route: 042
  3. REMDESIVIR [Concomitant]
     Active Substance: REMDESIVIR
  4. VANCOMYCIN [Concomitant]
     Active Substance: VANCOMYCIN
  5. CEFEPIME [Concomitant]
     Active Substance: CEFEPIME HYDROCHLORIDE
  6. FENTANYL [Concomitant]
     Active Substance: FENTANYL
  7. ATIVAN [Concomitant]
     Active Substance: LORAZEPAM
  8. KETAMINE [Concomitant]
     Active Substance: KETAMINE
  9. CLOBAZAM [Concomitant]
     Active Substance: CLOBAZAM
  10. FELBAMATE [Concomitant]
     Active Substance: FELBAMATE
  11. LACOSAMIDE [Concomitant]
     Active Substance: LACOSAMIDE
  12. TYLENOL [Concomitant]
     Active Substance: ACETAMINOPHEN
  13. PEPCID [Concomitant]
     Active Substance: FAMOTIDINE
  14. DEXTROSE [Concomitant]
     Active Substance: DEXTROSE
     Dates: start: 20220225, end: 20220227

REACTIONS (5)
  - Dizziness [None]
  - Mental status changes [None]
  - Seizure [None]
  - Apnoea [None]
  - Hypothermia [None]

NARRATIVE: CASE EVENT DATE: 20220225
